FAERS Safety Report 17418152 (Version 1)
Quarter: 2020Q1

REPORT INFORMATION
  Report Type: Spontaneous
  Country: CH (occurrence: CH)
  Receive Date: 20200213
  Receipt Date: 20200213
  Transmission Date: 20200409
  Serious: Yes (Hospitalization)
  Sender: FDA-Public Use
  Company Number: CH-009507513-2002CHE004442

PATIENT
  Age: 49 Year
  Sex: Female
  Weight: 77 kg

DRUGS (7)
  1. CYMBALTA [Concomitant]
     Active Substance: DULOXETINE HYDROCHLORIDE
     Dosage: 60 MILLIGRAM, DAILY (QD)
  2. FLUCTINE [Suspect]
     Active Substance: FLUOXETINE HYDROCHLORIDE
     Dosage: 20 MILLIGRAM, DAILY (QD)
     Route: 048
     Dates: start: 20200115, end: 20200119
  3. HUMALOG MIX [Suspect]
     Active Substance: INSULIN LISPRO
     Dosage: AS NECESSARY
     Dates: start: 20200112
  4. JANUVIA [Suspect]
     Active Substance: SITAGLIPTIN PHOSPHATE
     Dosage: 50 MILLIGRAM, DAILY (QD)
     Dates: start: 20200118
  5. PANTOZOL [Concomitant]
     Active Substance: PANTOPRAZOLE SODIUM
     Dosage: 20 MILLIGRAM, DAILY (QD)
  6. METFORMIN MEPHA [Suspect]
     Active Substance: METFORMIN HYDROCHLORIDE
     Dosage: 500 MILLIGRAM, EVERY 12 HOURS (Q12H)
     Dates: start: 20200114
  7. FRAGMIN [Suspect]
     Active Substance: DALTEPARIN SODIUM
     Dosage: 5000 INTERNATIONAL UNIT, DAILY (QD)
     Route: 058
     Dates: start: 20200110

REACTIONS (1)
  - Acute generalised exanthematous pustulosis [Recovering/Resolving]

NARRATIVE: CASE EVENT DATE: 20200121
